FAERS Safety Report 10464563 (Version 2)
Quarter: 2014Q4

REPORT INFORMATION
  Report Type: Report from Study
  Country: JP (occurrence: JP)
  Receive Date: 20140919
  Receipt Date: 20141028
  Transmission Date: 20150528
  Serious: Yes (Other)
  Sender: FDA-Public Use
  Company Number: JP-EISAI MEDICAL RESEARCH-EC-2014-000067

PATIENT
  Age: 13 Year
  Sex: Female
  Weight: 55 kg

DRUGS (17)
  1. INOVELON [Suspect]
     Active Substance: RUFINAMIDE
     Route: 048
     Dates: start: 20131113, end: 20131125
  2. LAMICTAL [Suspect]
     Active Substance: LAMOTRIGINE
     Route: 048
     Dates: start: 20130814, end: 20130825
  3. TOPINA [Suspect]
     Active Substance: TOPIRAMATE
     Route: 048
     Dates: start: 20131224
  4. INOVELON [Suspect]
     Active Substance: RUFINAMIDE
     Route: 048
     Dates: start: 20130921, end: 20130930
  5. INOVELON [Suspect]
     Active Substance: RUFINAMIDE
     Route: 048
     Dates: start: 20131001, end: 20131112
  6. INOVELON [Suspect]
     Active Substance: RUFINAMIDE
     Route: 048
     Dates: start: 20131126, end: 20140107
  7. INOVELON [Suspect]
     Active Substance: RUFINAMIDE
     Route: 048
     Dates: start: 20140108, end: 20140121
  8. INOVELON [Suspect]
     Active Substance: RUFINAMIDE
     Route: 048
     Dates: start: 20140122, end: 20140204
  9. INOVELON [Suspect]
     Active Substance: RUFINAMIDE
     Indication: LENNOX-GASTAUT SYNDROME
     Route: 048
     Dates: start: 20130729, end: 20130813
  10. INOVELON [Suspect]
     Active Substance: RUFINAMIDE
     Route: 048
     Dates: start: 20130814, end: 20130909
  11. TOPINA [Suspect]
     Active Substance: TOPIRAMATE
     Indication: LENNOX-GASTAUT SYNDROME
     Route: 048
     Dates: end: 20130813
  12. LAMICTAL [Suspect]
     Active Substance: LAMOTRIGINE
     Route: 048
     Dates: start: 20130826, end: 20130909
  13. INOVELON [Suspect]
     Active Substance: RUFINAMIDE
     Route: 048
     Dates: start: 20130910, end: 20130920
  14. BENZALIN [Suspect]
     Active Substance: NITRAZEPAM
     Indication: LENNOX-GASTAUT SYNDROME
     Route: 048
  15. TOPINA [Suspect]
     Active Substance: TOPIRAMATE
     Route: 048
     Dates: start: 20130814, end: 20131223
  16. LAMICTAL [Suspect]
     Active Substance: LAMOTRIGINE
     Indication: LENNOX-GASTAUT SYNDROME
     Route: 048
     Dates: end: 20130728
  17. LAMICTAL [Suspect]
     Active Substance: LAMOTRIGINE
     Route: 048
     Dates: start: 20130729, end: 20130813

REACTIONS (2)
  - Delirium [Recovering/Resolving]
  - Blood creatinine increased [None]

NARRATIVE: CASE EVENT DATE: 20131112
